FAERS Safety Report 6194167-5 (Version None)
Quarter: 2009Q2

REPORT INFORMATION
  Report Type: 
  Country: None (occurrence: None)
  Receive Date: 20090518
  Receipt Date: 20090507
  Transmission Date: 20091009
  Serious: Yes (Other)
  Sender: FDA-Public Use
  Company Number: US-BAXTER-2009BH008509

PATIENT
  Sex: Male

DRUGS (3)
  1. VINORELBINE TARTRATE [Suspect]
     Indication: HODGKIN'S DISEASE
     Route: 042
  2. GEMCITABINE [Suspect]
     Indication: HODGKIN'S DISEASE
     Route: 042
  3. NEUPOGEN [Suspect]
     Indication: HODGKIN'S DISEASE
     Route: 065

REACTIONS (2)
  - MYELODYSPLASTIC SYNDROME [None]
  - PLATELET DISORDER [None]
